FAERS Safety Report 19773391 (Version 3)
Quarter: 2025Q2

REPORT INFORMATION
  Report Type: Report from Study
  Country: FI (occurrence: FI)
  Receive Date: 20210901
  Receipt Date: 20250611
  Transmission Date: 20250717
  Serious: Yes (Hospitalization, Other)
  Sender: PFIZER
  Company Number: FI-ACCORD-235462

PATIENT
  Age: 64 Year
  Sex: Female
  Weight: 60 kg

DRUGS (14)
  1. RITUXIMAB [Suspect]
     Active Substance: RITUXIMAB
     Indication: Follicular lymphoma stage III
     Route: 042
     Dates: start: 20210525, end: 20210525
  2. RITUXIMAB [Suspect]
     Active Substance: RITUXIMAB
     Route: 042
     Dates: start: 20210601, end: 20210601
  3. EPCORITAMAB [Suspect]
     Active Substance: EPCORITAMAB
     Indication: Follicular lymphoma stage III
     Route: 058
     Dates: start: 20210525, end: 20210525
  4. EPCORITAMAB [Suspect]
     Active Substance: EPCORITAMAB
     Route: 058
     Dates: start: 20210601, end: 20210601
  5. LENALIDOMIDE [Suspect]
     Active Substance: LENALIDOMIDE
     Indication: Follicular lymphoma stage III
     Dosage: 20 MG, 1X/DAY, 1, DOSE NOT CHANGED FOR CYTOKINE RELEASE SYNDROME
     Route: 048
     Dates: start: 20210525, end: 20210601
  6. PREDNISOLONE [Suspect]
     Active Substance: PREDNISOLONE
     Indication: Prophylaxis
     Dosage: 100 MG, 1X/DAY
     Route: 048
     Dates: start: 20210525, end: 20210528
  7. PREDNISOLONE [Suspect]
     Active Substance: PREDNISOLONE
     Dosage: 100 MG, 1X/DAY
     Dates: start: 20210531, end: 20210604
  8. ACETAMINOPHEN [Concomitant]
     Active Substance: ACETAMINOPHEN
     Indication: Premedication
     Dates: start: 20210526, end: 20210610
  9. ACETAMINOPHEN [Concomitant]
     Active Substance: ACETAMINOPHEN
     Dosage: 1 G, DAILY
     Route: 048
     Dates: start: 20210601, end: 20210601
  10. VALACYCLOVIR HYDROCHLORIDE [Concomitant]
     Active Substance: VALACYCLOVIR HYDROCHLORIDE
     Dates: start: 20210609
  11. CETIRIZINE [Concomitant]
     Active Substance: CETIRIZINE HYDROCHLORIDE
     Indication: Premedication
     Route: 048
     Dates: start: 20210601, end: 20210601
  12. INNOHEP [Concomitant]
     Active Substance: TINZAPARIN SODIUM
     Dates: start: 20210318
  13. FLUCONAZOLE [Concomitant]
     Active Substance: FLUCONAZOLE
     Dates: start: 20210609, end: 20210617
  14. NYSTATIN [Concomitant]
     Active Substance: NYSTATIN
     Dates: start: 20210608, end: 20210611

REACTIONS (3)
  - C-reactive protein increased [Unknown]
  - Mania [Recovered/Resolved]
  - Cytokine release syndrome [Recovered/Resolved]

NARRATIVE: CASE EVENT DATE: 20210605
